FAERS Safety Report 11324206 (Version 3)
Quarter: 2015Q3

REPORT INFORMATION
  Report Type: Report from Study
  Country: JP (occurrence: JP)
  Receive Date: 20150730
  Receipt Date: 20150910
  Transmission Date: 20151125
  Serious: Yes (Hospitalization, Other)
  Sender: FDA-Public Use
  Company Number: JP-ABBVIE-15K-087-1417125-00

PATIENT
  Age: 56 Year
  Sex: Female
  Weight: 34.4 kg

DRUGS (12)
  1. MESALAZINE [Concomitant]
     Active Substance: MESALAMINE
     Indication: CROHN^S DISEASE
     Route: 048
  2. HUMIRA [Suspect]
     Active Substance: ADALIMUMAB
     Indication: CROHN^S DISEASE
     Route: 058
     Dates: start: 20120207, end: 20120207
  3. HUMIRA [Suspect]
     Active Substance: ADALIMUMAB
     Route: 058
     Dates: start: 20120221, end: 20120221
  4. HUMIRA [Suspect]
     Active Substance: ADALIMUMAB
     Route: 058
     Dates: start: 20150114
  5. CALCIUM LACTATE [Concomitant]
     Active Substance: CALCIUM LACTATE
     Indication: OSTEOPOROSIS
     Route: 048
  6. AZATHIOPRINE. [Concomitant]
     Active Substance: AZATHIOPRINE
     Indication: CROHN^S DISEASE
     Route: 048
     Dates: start: 20140725, end: 20140728
  7. HUMIRA [Suspect]
     Active Substance: ADALIMUMAB
     Route: 058
     Dates: start: 20120306, end: 20141129
  8. VITAMIN B COMPLEX [Concomitant]
     Active Substance: CYANOCOBALAMIN\DEXPANTHENOL\NIACINAMIDE\PYRIDOXINE HYDROCHLORIDE\RIBOFLAVIN 5^-PHOSPHATE SODIUM\THIAMINE HYDROCHLORIDE\VITAMIN B COMPLEX
     Indication: OSTEOPOROSIS
     Dosage: 3 CP/DAY
     Route: 048
  9. AZATHIOPRINE. [Concomitant]
     Active Substance: AZATHIOPRINE
     Route: 048
     Dates: start: 20140729, end: 20141027
  10. ALFACALCIDOL [Concomitant]
     Active Substance: ALFACALCIDOL
     Indication: OSTEOPOROSIS
     Route: 048
  11. ELENTAL [Concomitant]
     Active Substance: MINERALS\VITAMINS
     Indication: CROHN^S DISEASE
     Route: 048
  12. POLAPREZINC [Concomitant]
     Active Substance: POLAPREZINC
     Indication: CROHN^S DISEASE
     Route: 048
     Dates: start: 20140721, end: 20141223

REACTIONS (4)
  - Fistula of small intestine [Unknown]
  - Crohn^s disease [Recovered/Resolved]
  - Pruritus [Recovered/Resolved]
  - Colonic fistula [Unknown]

NARRATIVE: CASE EVENT DATE: 20140718
